FAERS Safety Report 22736706 (Version 2)
Quarter: 2023Q4

REPORT INFORMATION
  Report Type: Spontaneous
  Country: US (occurrence: US)
  Receive Date: 20230721
  Receipt Date: 20231212
  Transmission Date: 20240109
  Serious: No
  Sender: FDA-Public Use
  Company Number: US-SANOFI-01691224

PATIENT
  Age: 46 Year
  Sex: Female

DRUGS (1)
  1. DUPIXENT [Suspect]
     Active Substance: DUPILUMAB
     Indication: Asthma
     Dosage: 300 MG, QOW
     Route: 065
     Dates: start: 2021

REACTIONS (8)
  - Increased appetite [Unknown]
  - Weight increased [Unknown]
  - Peripheral swelling [Unknown]
  - Joint swelling [Unknown]
  - Mobility decreased [Unknown]
  - Swelling face [Unknown]
  - Exposure during pregnancy [Unknown]
  - Joint range of motion decreased [Unknown]
